FAERS Safety Report 16267261 (Version 2)
Quarter: 2019Q3

REPORT INFORMATION
  Report Type: Spontaneous
  Country: US (occurrence: US)
  Receive Date: 20190502
  Receipt Date: 20190705
  Transmission Date: 20191004
  Serious: Yes (Hospitalization, Other)
  Sender: FDA-Public Use
  Company Number: PHEH2019US018340

PATIENT
  Sex: Female

DRUGS (1)
  1. TYKERB [Suspect]
     Active Substance: LAPATINIB DITOSYLATE
     Indication: BREAST CANCER FEMALE
     Dosage: 1250 MG, QD
     Route: 048
     Dates: start: 20190405

REACTIONS (5)
  - Malignant neoplasm progression [Unknown]
  - Pneumonia [Unknown]
  - Dehydration [Unknown]
  - Breast cancer female [Unknown]
  - Drug ineffective [Unknown]
